FAERS Safety Report 8421260 (Version 4)
Quarter: 2012Q4

REPORT INFORMATION
  Report Type: Report from Study
  Country: PH (occurrence: PH)
  Receive Date: 20120222
  Receipt Date: 20121221
  Transmission Date: 20130627
  Serious: Yes (Life-Threatening, Hospitalization)
  Sender: FDA-Public Use
  Company Number: PH-JNJFOC-20120210856

PATIENT
  Age: 27 Year
  Sex: Female
  Weight: 90.6 kg

DRUGS (9)
  1. PALIPERIDONE PALMITATE [Suspect]
     Indication: SCHIZOPHRENIA
     Route: 030
     Dates: start: 20110831
  2. PALIPERIDONE PALMITATE [Suspect]
     Indication: SCHIZOPHRENIA
     Route: 030
     Dates: start: 20120118
  3. XANOR [Concomitant]
     Indication: ANXIETY
     Dates: start: 20110831
  4. LAMICTAL [Concomitant]
     Indication: DRUG THERAPY
     Dates: start: 20091005
  5. ABILIFY [Concomitant]
     Indication: PARANOIA
     Dates: start: 20091005
  6. LEXOTAN [Concomitant]
     Indication: AGITATION
     Dates: start: 20091203
  7. LEXOTAN [Concomitant]
     Indication: SLEEP DISORDER
     Dates: start: 20091203
  8. FLUOXETINE [Concomitant]
     Indication: ANXIETY
     Dates: start: 20111126, end: 20111221
  9. ALPRAZOLAM [Concomitant]
     Indication: ANXIETY
     Dates: start: 20111126

REACTIONS (1)
  - Suicidal behaviour [Recovered/Resolved]
